FAERS Safety Report 4780413-9 (Version None)
Quarter: 2005Q3

REPORT INFORMATION
  Report Type: 
  Country: None (occurrence: None)
  Receive Date: 20050927
  Receipt Date: 20030324
  Transmission Date: 20060218
  Serious: Yes (Hospitalization)
  Sender: FDA-Public Use
  Company Number: US-BRISTOL-MYERS SQUIBB COMPANY-12198834

PATIENT
  Age: 70 Year
  Sex: Female

DRUGS (6)
  1. CETUXIMAB [Suspect]
     Indication: NON-SMALL CELL LUNG CANCER
     Dosage: MOST RECENT INFUSION 09-JAN-2002.
     Route: 042
     Dates: start: 20010821, end: 20020109
  2. CARBOPLATIN [Suspect]
     Indication: NON-SMALL CELL LUNG CANCER
     Dates: start: 20010821, end: 20020109
  3. GEMCITABINE [Suspect]
     Indication: NON-SMALL CELL LUNG CANCER
     Dates: start: 20010821, end: 20020109
  4. IRESSA [Concomitant]
     Indication: NON-SMALL CELL LUNG CANCER
  5. RYTHMOL [Concomitant]
  6. ZESTORETIC [Concomitant]

REACTIONS (1)
  - PNEUMONIA [None]
